FAERS Safety Report 14560445 (Version 1)
Quarter: 2018Q1

REPORT INFORMATION
  Report Type: Spontaneous
  Country: NO (occurrence: NO)
  Receive Date: 20180222
  Receipt Date: 20180222
  Transmission Date: 20180509
  Serious: Yes (Death)
  Sender: FDA-Public Use
  Company Number: NO-ABBVIE-18K-122-2263230-00

PATIENT
  Age: 58 Year
  Sex: Male

DRUGS (5)
  1. APOMORPHINE [Suspect]
     Active Substance: APOMORPHINE
     Indication: PRODUCT USED FOR UNKNOWN INDICATION
     Route: 065
  2. SIFROL [Concomitant]
     Active Substance: PRAMIPEXOLE
     Indication: PRODUCT USED FOR UNKNOWN INDICATION
  3. STALEVO [Concomitant]
     Active Substance: CARBIDOPA\ENTACAPONE\LEVODOPA
     Indication: PRODUCT USED FOR UNKNOWN INDICATION
     Dosage: UNIT DOSE: 150MG/37.5MG/200MG
  4. DUODOPA [Suspect]
     Active Substance: CARBIDOPA\LEVODOPA
     Indication: PRODUCT USED FOR UNKNOWN INDICATION
     Dosage: 2.4 ML / H, MORNING DOSE 4 ML
     Route: 050
  5. DUODOPA [Suspect]
     Active Substance: CARBIDOPA\LEVODOPA
     Dosage: DOSE INCREASED
     Route: 050

REACTIONS (13)
  - Drug level below therapeutic [Unknown]
  - Balance disorder [Unknown]
  - Device kink [Unknown]
  - Panic disorder [Unknown]
  - Anxiety [Unknown]
  - Dyskinesia [Unknown]
  - Death [Fatal]
  - Dystonia [Unknown]
  - Hallucination [Unknown]
  - Device issue [Unknown]
  - Pain [Unknown]
  - Intentional medical device removal by patient [Unknown]
  - Device occlusion [Unknown]
